FAERS Safety Report 13071466 (Version 2)
Quarter: 2021Q1

REPORT INFORMATION
  Report Type: Spontaneous
  Country: US (occurrence: US)
  Receive Date: 20161229
  Receipt Date: 20210118
  Transmission Date: 20210419
  Serious: No
  Sender: FDA-Public Use
  Company Number: US-PFIZER INC-2016431900

PATIENT
  Age: 64 Year
  Sex: Female

DRUGS (16)
  1. WARFARIN SODIUM. [Concomitant]
     Active Substance: WARFARIN SODIUM
     Dosage: 10 MG, 1X/DAY  (1 TAB DAILY, AT BEDTIME)
     Route: 048
     Dates: start: 20150909
  2. FLONASE ALLERGY RELIEF [Concomitant]
     Active Substance: FLUTICASONE PROPIONATE
     Dosage: 50 MG, 2X/DAY  (50 MG/1 ACTUATION, 1 SPRAY IN EACH NOSTRIL DAILY)
     Route: 045
     Dates: start: 20150909
  3. XANAX [Concomitant]
     Active Substance: ALPRAZOLAM
     Dosage: 1 MG, 2X/DAY (1 TABLET BID)
     Route: 048
     Dates: start: 20150909
  4. ARMOUR THYROID [Concomitant]
     Active Substance: THYROID, PORCINE
     Dosage: 60 MG, DAILY (1 TABLET DAILY)
     Route: 048
     Dates: start: 20150909
  5. LORTAB [Concomitant]
     Active Substance: ACETAMINOPHEN\HYDROCODONE BITARTRATE
     Dosage: UNK, 4X/DAY (HYDROCODONE?10 MG) /(ACETAMINOPHEN?325MG)
     Dates: start: 20150909
  6. SINGULAIR [Concomitant]
     Active Substance: MONTELUKAST SODIUM
     Dosage: 10 MG, AS NEEDED
     Dates: start: 20150909
  7. LIPITOR [Concomitant]
     Active Substance: ATORVASTATIN CALCIUM
     Dosage: 40 MG, 1X/DAY (QHS)
     Route: 048
     Dates: start: 20161001
  8. AZELASTINE HCL [Concomitant]
     Active Substance: AZELASTINE HYDROCHLORIDE
     Dosage: UNK, 2X/DAY (1 SPRAY(S) IN NOSTRIL BID)
     Route: 045
     Dates: start: 20150909
  9. ESTRACE [Concomitant]
     Active Substance: ESTRADIOL
     Dosage: 1 G, 2X/WEEK
     Dates: start: 20150909
  10. LYRICA [Suspect]
     Active Substance: PREGABALIN
     Dosage: 150 MG, 2X/DAY
     Route: 048
  11. LUNESTA [Concomitant]
     Active Substance: ESZOPICLONE
     Dosage: 3 MG, AS NEEDED (1 TABLET AT BEDTIME PRN)
     Route: 048
     Dates: start: 20150909
  12. SOMA [Concomitant]
     Active Substance: CARISOPRODOL
     Dosage: 350 MG, DAILY
     Route: 048
     Dates: start: 20150909
  13. KEPPRA [Concomitant]
     Active Substance: LEVETIRACETAM
     Dosage: 1500 MG, 2X/DAY (1 1/2 TABS BID)
     Route: 048
     Dates: start: 20150909
  14. WARFARIN SODIUM. [Concomitant]
     Active Substance: WARFARIN SODIUM
     Dosage: 2.5 MG, 2X/WEEK (1/2 TAB SUNDAY AND TUESDAY)
     Dates: start: 20161001
  15. ALLEGRA [Concomitant]
     Active Substance: FEXOFENADINE HYDROCHLORIDE
     Dosage: UNK
     Dates: start: 20150909
  16. WELLBUTRIN [Concomitant]
     Active Substance: BUPROPION HYDROCHLORIDE
     Dosage: 300 MG, DAILY (TAKE 3 TABLETS DAILY)
     Route: 048
     Dates: start: 20150909

REACTIONS (1)
  - Malaise [Unknown]
